FAERS Safety Report 19454069 (Version 1)
Quarter: 2021Q2

REPORT INFORMATION
  Report Type: Spontaneous
  Country: CN (occurrence: CN)
  Receive Date: 20210623
  Receipt Date: 20210623
  Transmission Date: 20210717
  Serious: Yes (Death, Other)
  Sender: FDA-Public Use
  Company Number: CN-BAYER-2021-162447

PATIENT
  Sex: Female

DRUGS (3)
  1. AMIODARONE [Concomitant]
     Active Substance: AMIODARONE
     Indication: ARRHYTHMIA
     Route: 048
  2. AVELOX [Suspect]
     Active Substance: MOXIFLOXACIN HYDROCHLORIDE
     Indication: URINARY TRACT INFECTION
     Dosage: 1 DF, QD
     Route: 048
  3. AVELOX [Suspect]
     Active Substance: MOXIFLOXACIN HYDROCHLORIDE
     Indication: WHITE BLOOD CELL COUNT INCREASED

REACTIONS (8)
  - Death [Fatal]
  - Hypotension [None]
  - Contraindicated product administered [None]
  - Loss of consciousness [None]
  - Product monitoring error [None]
  - Labelled drug-disease interaction medication error [None]
  - Heart rate decreased [None]
  - Off label use [None]
